FAERS Safety Report 6306535-9 (Version None)
Quarter: 2009Q3

REPORT INFORMATION
  Report Type: 
  Country: None (occurrence: None)
  Receive Date: 20090811
  Receipt Date: 20090811
  Transmission Date: 20100115
  Serious: Yes (Hospitalization)
  Sender: FDA-Public Use
  Company Number: None

PATIENT
  Age: 53 Year
  Sex: Female
  Weight: 91 kg

DRUGS (1)
  1. ABRAXANE [Suspect]
     Indication: BREAST CANCER
     Dosage: 540 MG -260 MG/ M2 ONCE IV DRIP 1ST OF 3 DOSES
     Route: 041
     Dates: start: 20090727, end: 20090727

REACTIONS (1)
  - TOXIC EPIDERMAL NECROLYSIS [None]
